FAERS Safety Report 10079163 (Version 1)
Quarter: 2014Q2

REPORT INFORMATION
  Report Type: Spontaneous
  Country: US (occurrence: US)
  Receive Date: 20140415
  Receipt Date: 20140415
  Transmission Date: 20141212
  Serious: Yes (Other)
  Sender: FDA-Public Use
  Company Number: US-ACTAVIS-2014-07063

PATIENT
  Age: 35 Year
  Sex: Female
  Weight: 113 kg

DRUGS (10)
  1. QUETIAPINE (AGPTC) [Suspect]
     Indication: MAJOR DEPRESSION
     Dosage: 300 MG, MORNING DOSE
     Route: 065
  2. FENTANYL CITRATE (WATSON LABORATORIES) [Interacting]
     Indication: ANAESTHETIC PREMEDICATION
     Dosage: 100 ?G, TOTAL
     Route: 042
  3. FENTANYL CITRATE (WATSON LABORATORIES) [Interacting]
     Indication: INDUCTION OF ANAESTHESIA
     Dosage: 50 ?G, UNK
     Route: 042
  4. PROPOFOL (UNKNOWN) [Interacting]
     Indication: INDUCTION OF ANAESTHESIA
     Dosage: 200 MG, TOTAL
     Route: 042
  5. DESFLURANE [Suspect]
     Indication: MAINTENANCE OF ANAESTHESIA
     Dosage: UP TO 6%
     Route: 055
  6. LAMOTRIGINE [Concomitant]
     Indication: PRODUCT USED FOR UNKNOWN INDICATION
     Dosage: 300 MG, MORNING DOSE
     Route: 065
  7. VENLAFAXINE [Concomitant]
     Indication: PRODUCT USED FOR UNKNOWN INDICATION
     Dosage: 300 MG, MORNING DOSE
     Route: 065
  8. MIDAZOLAM [Concomitant]
     Indication: ANAESTHETIC PREMEDICATION
     Dosage: 2 MG, TOTAL
     Route: 042
  9. LIDOCAINE [Concomitant]
     Indication: INDUCTION OF ANAESTHESIA
     Dosage: 80 MG, TOTAL
     Route: 042
  10. SUCCINYLCHOLINE [Concomitant]
     Indication: NEUROMUSCULAR BLOCKING THERAPY
     Dosage: 120 MG, TOTAL

REACTIONS (2)
  - Procedural hypotension [Recovered/Resolved]
  - Drug interaction [Unknown]
